FAERS Safety Report 22981849 (Version 5)
Quarter: 2023Q4

REPORT INFORMATION
  Report Type: Spontaneous
  Country: CA (occurrence: CA)
  Receive Date: 20230925
  Receipt Date: 20231117
  Transmission Date: 20240110
  Serious: Yes (Disabling, Other)
  Sender: FDA-Public Use
  Company Number: CA-CELLTRION INC.-2023CA018529

PATIENT

DRUGS (4)
  1. INFLECTRA [Suspect]
     Active Substance: INFLIXIMAB-DYYB
     Indication: Crohn^s disease
     Dosage: 420 MG, W 0, 2, 6 WEEKS THEN EVERY 8 WEEKS (FIRST TREATMENT)
     Route: 042
     Dates: start: 20230918
  2. INFLECTRA [Suspect]
     Active Substance: INFLIXIMAB-DYYB
     Dosage: 420 MG, W 0, 2, 6 WEEKS THEN EVERY 8 WEEKS (2 WEEKS AND 3 DAYS, WEEK 2 OF INDUCTION)
     Route: 042
     Dates: start: 20231005
  3. INFLECTRA [Suspect]
     Active Substance: INFLIXIMAB-DYYB
     Dosage: 420 MG, EVERY 4 WEEKS (4 WEEKS AND 6 DAYS)
     Route: 042
     Dates: start: 20231108
  4. GABAPENTIN [Concomitant]
     Active Substance: GABAPENTIN
     Dosage: UNK

REACTIONS (16)
  - Gait disturbance [Recovered/Resolved]
  - Pain [Not Recovered/Not Resolved]
  - Mobility decreased [Recovered/Resolved]
  - Neuralgia [Recovered/Resolved]
  - Muscle strain [Recovered/Resolved]
  - Pneumothorax [Recovered/Resolved]
  - Abdominal pain [Recovered/Resolved]
  - Haematochezia [Recovered/Resolved]
  - Constipation [Recovered/Resolved]
  - Fibromyalgia [Not Recovered/Not Resolved]
  - Joint swelling [Not Recovered/Not Resolved]
  - Arthralgia [Not Recovered/Not Resolved]
  - Dyspnoea [Recovered/Resolved]
  - Gait disturbance [Recovering/Resolving]
  - Musculoskeletal stiffness [Recovering/Resolving]
  - Peripheral swelling [Recovering/Resolving]

NARRATIVE: CASE EVENT DATE: 20230101
